FAERS Safety Report 5104114-2 (Version None)
Quarter: 2006Q3

REPORT INFORMATION
  Report Type: 
  Country: None (occurrence: None)
  Receive Date: 20060913
  Receipt Date: 20060905
  Transmission Date: 20061208
  Serious: Yes (Death, Hospitalization)
  Sender: FDA-Public Use
  Company Number: CG-MERCK-0609USA00602

PATIENT
  Age: 35 Year
  Sex: Male

DRUGS (1)
  1. STROMECTOL [Suspect]
     Route: 048
     Dates: start: 20060617, end: 20060617

REACTIONS (10)
  - BACK PAIN [None]
  - COMA [None]
  - CONJUNCTIVAL HAEMORRHAGE [None]
  - DECUBITUS ULCER [None]
  - DEPRESSED LEVEL OF CONSCIOUSNESS [None]
  - ENCEPHALOPATHY [None]
  - HEADACHE [None]
  - HYPOTENSION [None]
  - SEPSIS [None]
  - URINARY INCONTINENCE [None]
